FAERS Safety Report 9720387 (Version 1)
Quarter: 2013Q4

REPORT INFORMATION
  Report Type: Spontaneous
  Country: SE (occurrence: SE)
  Receive Date: 20131129
  Receipt Date: 20131129
  Transmission Date: 20140711
  Serious: Yes (Hospitalization)
  Sender: FDA-Public Use
  Company Number: SE-ASTRAZENECA-2013SE85858

PATIENT
  Age: 86 Year
  Sex: Female

DRUGS (5)
  1. ATACAND PLUS [Suspect]
     Dosage: 16 MG/12.5 MG TWO TIEMS A DAY
     Route: 048
     Dates: start: 20110506, end: 20130913
  2. SELOKEN ZOC [Concomitant]
     Dates: start: 20110506
  3. FOTIL FORTE [Concomitant]
     Dosage: 5 MG/ML + 40 MG/ML X 2 EYE DROPS, SOLUTIONS
     Dates: start: 20130228
  4. DIAMOX [Concomitant]
  5. ZOLPIDEM SANDOZ [Concomitant]
     Dates: start: 20101216

REACTIONS (9)
  - Urinary retention [Unknown]
  - Disorientation [Unknown]
  - Fatigue [Unknown]
  - Malnutrition [Unknown]
  - Pelvic prolapse [Unknown]
  - Dehydration [Unknown]
  - Urinary tract infection [Unknown]
  - Hypokalaemia [Unknown]
  - Hyponatraemia [Recovered/Resolved]
